FAERS Safety Report 8155513-6 (Version None)
Quarter: 2012Q1

REPORT INFORMATION
  Report Type: 
  Country: None (occurrence: None)
  Receive Date: 20120215
  Receipt Date: 20120130
  Transmission Date: 20120608
  Serious: Yes (Hospitalization, Disabling)
  Sender: FDA-Public Use
  Company Number: DSA_54917_2012

PATIENT
  Age: 72 Year
  Sex: Male
  Weight: 65.5 kg

DRUGS (8)
  1. ASPIRIN [Concomitant]
  2. METOPROLOL TARTRATE [Concomitant]
  3. NITROGLYCERIN [Concomitant]
  4. PEPCID [Concomitant]
  5. ENALAPRIL MALEATE [Suspect]
     Indication: PRODUCT USED FOR UNKNOWN INDICATION
     Dosage: (10 MG BID ORAL)
     Route: 048
     Dates: start: 20111006, end: 20111017
  6. BLINDED THERAPY [Suspect]
     Indication: TYPE 2 DIABETES MELLITUS
     Dosage: (DF)
     Dates: start: 20110816
  7. ISOSORBIDE DINITRATE [Concomitant]
  8. METFORMIN HCL [Concomitant]

REACTIONS (8)
  - EXOSTOSIS [None]
  - LOSS OF CONSCIOUSNESS [None]
  - AREFLEXIA [None]
  - INTERVERTEBRAL DISC PROTRUSION [None]
  - SHOCK [None]
  - SPINAL OSTEOARTHRITIS [None]
  - LIGAMENT SPRAIN [None]
  - SPINAL CORD OEDEMA [None]
